FAERS Safety Report 5740194-9 (Version None)
Quarter: 2008Q2

REPORT INFORMATION
  Report Type: 
  Country: None (occurrence: None)
  Receive Date: 20080516
  Receipt Date: 20080507
  Transmission Date: 20081010
  Serious: Yes (Hospitalization, Other)
  Sender: FDA-Public Use
  Company Number: US-ROCHE-556644

PATIENT
  Sex: Female

DRUGS (6)
  1. PEG-INTERFERON A-2A (RO 25-8310) [Suspect]
     Dosage: PREFILLED SYRINGE
     Route: 065
     Dates: start: 20080207, end: 20080305
  2. PEG-INTERFERON A-2A (RO 25-8310) [Suspect]
     Dosage: FORM: PRE-FILLED SYRINGE
     Route: 065
     Dates: start: 20080312
  3. REBETOL [Suspect]
     Dosage: REBETOL
     Route: 065
     Dates: start: 20080207, end: 20080305
  4. REBETOL [Suspect]
     Route: 065
     Dates: start: 20080312
  5. REBETOL [Suspect]
     Route: 065
     Dates: start: 20080401, end: 20080401
  6. REBETOL [Suspect]
     Route: 065
     Dates: start: 20080401

REACTIONS (17)
  - ANAEMIA [None]
  - ANOREXIA [None]
  - CRYING [None]
  - DEHYDRATION [None]
  - DIARRHOEA [None]
  - DIZZINESS [None]
  - FATIGUE [None]
  - FLATULENCE [None]
  - HYPOTHYROIDISM [None]
  - IRRITABILITY [None]
  - LOSS OF CONSCIOUSNESS [None]
  - MUSCLE TIGHTNESS [None]
  - NAUSEA [None]
  - STOMACH DISCOMFORT [None]
  - SYNCOPE VASOVAGAL [None]
  - WEIGHT DECREASED [None]
  - WHITE BLOOD CELL COUNT DECREASED [None]
